FAERS Safety Report 9530152 (Version 2)
Quarter: 2013Q3

REPORT INFORMATION
  Report Type: Spontaneous
  Country: DE (occurrence: DE)
  Receive Date: 20130917
  Receipt Date: 20130926
  Transmission Date: 20140515
  Serious: Yes (Other)
  Sender: FDA-Public Use
  Company Number: DE-ROCHE-1272879

PATIENT
  Age: 48 Year
  Sex: Male
  Weight: 90 kg

DRUGS (6)
  1. BEVACIZUMAB [Suspect]
     Indication: NON-SMALL CELL LUNG CANCER
     Route: 042
     Dates: start: 20130609
  2. DOCETAXEL [Suspect]
     Indication: NON-SMALL CELL LUNG CANCER
     Route: 042
     Dates: start: 20130609
  3. CARBOPLATIN [Suspect]
     Indication: NON-SMALL CELL LUNG CANCER
     Route: 042
     Dates: start: 20130609
  4. PANTOZOL (GERMANY) [Concomitant]
     Indication: PROPHYLAXIS AGAINST GASTROINTESTINAL ULCER
     Route: 048
  5. TEGRETAL [Concomitant]
     Route: 048
  6. DEXAMETHASON [Concomitant]
     Route: 048

REACTIONS (3)
  - Wrong technique in drug usage process [Unknown]
  - Dermatitis [Recovering/Resolving]
  - Local swelling [Recovering/Resolving]
